FAERS Safety Report 7803053-3 (Version None)
Quarter: 2011Q4

REPORT INFORMATION
  Report Type: 
  Country: None (occurrence: None)
  Receive Date: 20111007
  Receipt Date: 20111004
  Transmission Date: 20120403
  Serious: Yes (Hospitalization)
  Sender: FDA-Public Use
  Company Number: US-ABBOTT-11P-163-0734349-00

PATIENT
  Age: 83 Year
  Sex: Female
  Weight: 70.37 kg

DRUGS (5)
  1. TOPROL-XL [Concomitant]
     Indication: PRODUCT USED FOR UNKNOWN INDICATION
  2. HUMIRA [Suspect]
     Dates: end: 20110401
  3. HUMIRA [Suspect]
     Indication: PSORIATIC ARTHROPATHY
     Dosage: ONE DOSE
  4. HUMIRA [Suspect]
     Indication: PSORIASIS
     Dosage: SINGLE DOSE: DAY ONE
     Route: 058
     Dates: start: 20110222, end: 20110222
  5. DIOVAN [Concomitant]
     Indication: PRODUCT USED FOR UNKNOWN INDICATION

REACTIONS (4)
  - POOR QUALITY DRUG ADMINISTERED [None]
  - DYSPNOEA [None]
  - EMPHYSEMA [None]
  - SKIN DISCOLOURATION [None]
